FAERS Safety Report 4873445-3 (Version None)
Quarter: 2005Q4

REPORT INFORMATION
  Report Type: 
  Country: None (occurrence: None)
  Receive Date: 20051201
  Receipt Date: 20050820
  Transmission Date: 20060501
  Serious: No
  Sender: FDA-Public Use
  Company Number: 2005PV001348

PATIENT
  Age: 66 Year
  Sex: Male
  Weight: 97.5234 kg

DRUGS (10)
  1. BYETTA [Suspect]
     Indication: DIABETES MELLITUS NON-INSULIN-DEPENDENT
     Dosage: 5 MCG;BID;SC
     Route: 058
     Dates: start: 20050817
  2. ACTOS [Concomitant]
  3. METFORMIN HCL [Concomitant]
  4. GLYBURIDE [Concomitant]
  5. ADALAT [Concomitant]
  6. AVAPRO [Concomitant]
  7. PLAVIX [Concomitant]
  8. LISINOPRIL [Concomitant]
  9. METOPROLOL [Concomitant]
  10. ZOCOR [Concomitant]

REACTIONS (2)
  - DECREASED APPETITE [None]
  - SOMNOLENCE [None]
